FAERS Safety Report 15715613 (Version 1)
Quarter: 2018Q4

REPORT INFORMATION
  Report Type: Spontaneous
  Country: GB (occurrence: GB)
  Receive Date: 20181212
  Receipt Date: 20181212
  Transmission Date: 20190205
  Serious: Yes (Other)
  Sender: FDA-Public Use
  Company Number: GB-ALLERGAN-1857314US

PATIENT
  Age: 60 Year
  Sex: Female

DRUGS (16)
  1. NITROFURANTOIN. [Concomitant]
     Active Substance: NITROFURANTOIN
     Dosage: 50 MG, QD
  2. LANSOPRAZOLE. [Concomitant]
     Active Substance: LANSOPRAZOLE
  3. BACLOFEN. [Concomitant]
     Active Substance: BACLOFEN
     Dosage: 120 MG, QD
  4. AMITRIPTYLINE [Concomitant]
     Active Substance: AMITRIPTYLINE
     Dosage: 50 MG, QHS
  5. NAPROXEN. [Concomitant]
     Active Substance: NAPROXEN
     Dosage: 2 DF, QD
  6. FERROUS FUMARATE [Concomitant]
     Active Substance: FERROUS FUMARATE
  7. CLONAZEPAM. [Concomitant]
     Active Substance: CLONAZEPAM
     Dosage: 2MG DAILY AND 2 MG AT NIGHT
  8. TRAMADOL HYDROCHLORIDE. [Concomitant]
     Active Substance: TRAMADOL HYDROCHLORIDE
     Dosage: 1-2 (USUALLY 1X4 DAY), PRN
  9. ORAMORPH [Concomitant]
     Active Substance: MORPHINE SULFATE
     Indication: PAIN
     Dosage: UNK, PRN
  10. FOSFOMYCIN TROMETHAMINE - BP [Suspect]
     Active Substance: FOSFOMYCIN TROMETHAMINE
     Indication: PRODUCT USED FOR UNKNOWN INDICATION
     Dosage: 3 G, SINGLE
     Route: 048
     Dates: start: 20181116, end: 20181116
  11. ACETYLSALICYLIC ACID [Concomitant]
     Active Substance: ASPIRIN
  12. ZOMORPH [Concomitant]
     Active Substance: MORPHINE SULFATE
     Dosage: 1X2 DAY USUALLY 1 AT NIGHT, PRN
  13. ALENDRONIC ACID [Concomitant]
     Active Substance: ALENDRONIC ACID
  14. ACCRETE D3 [Concomitant]
     Dosage: 2 DF, QD
  15. GABAPENTIN. [Concomitant]
     Active Substance: GABAPENTIN
     Dosage: 3600 MG, QD
  16. PARACETAMOL [Concomitant]
     Active Substance: ACETAMINOPHEN
     Dosage: 8 DF, QD

REACTIONS (6)
  - Pain [Not Recovered/Not Resolved]
  - Diarrhoea [Not Recovered/Not Resolved]
  - Stoma site haemorrhage [Not Recovered/Not Resolved]
  - Device adhesion issue [Not Recovered/Not Resolved]
  - Stoma site erythema [Not Recovered/Not Resolved]
  - Stoma site ulcer [Not Recovered/Not Resolved]

NARRATIVE: CASE EVENT DATE: 20181117
